FAERS Safety Report 25675007 (Version 1)
Quarter: 2025Q3

REPORT INFORMATION
  Report Type: Spontaneous
  Country: US (occurrence: US)
  Receive Date: 20250813
  Receipt Date: 20250813
  Transmission Date: 20251020
  Serious: No
  Sender: AMERICAN REGENT
  Company Number: US-AMERICAN REGENT INC-2024002998

PATIENT
  Age: 8 Decade
  Sex: Female

DRUGS (1)
  1. FERRIC CARBOXYMALTOSE [Suspect]
     Active Substance: FERRIC CARBOXYMALTOSE
     Indication: Ill-defined disorder
     Route: 065
     Dates: start: 2024, end: 2024

REACTIONS (2)
  - Orthopnoea [Unknown]
  - Nausea [Unknown]

NARRATIVE: CASE EVENT DATE: 20240101
